FAERS Safety Report 7368592-0 (Version None)
Quarter: 2011Q1

REPORT INFORMATION
  Report Type: 
  Country: None (occurrence: None)
  Receive Date: 20110310
  Receipt Date: 20110304
  Transmission Date: 20110831
  Serious: Yes (Life-Threatening)
  Sender: FDA-Public Use
  Company Number: 2011SP007098

PATIENT
  Age: 31 Year
  Sex: Female

DRUGS (2)
  1. SYNTOCINON [Concomitant]
  2. GLYCERYL TRINITRATE (GLYCERYL TRINITRATE /00003201/) [Suspect]
     Indication: CHEST PAIN
     Dosage: RESP
     Route: 055
     Dates: start: 20100601, end: 20100601

REACTIONS (4)
  - POSTPARTUM HAEMORRHAGE [None]
  - DRUG EXPOSURE DURING PREGNANCY [None]
  - CAESAREAN SECTION [None]
  - HAEMOGLOBIN DECREASED [None]
